FAERS Safety Report 6526743-1 (Version None)
Quarter: 2010Q1

REPORT INFORMATION
  Report Type: 
  Country: None (occurrence: None)
  Receive Date: 20100104
  Receipt Date: 20100104
  Transmission Date: 20100710
  Serious: No
  Sender: FDA-Public Use
  Company Number: None

PATIENT
  Age: 67 Year
  Sex: Female
  Weight: 94.3482 kg

DRUGS (1)
  1. AMLODIPINE BESYLATE [Suspect]
     Indication: BLOOD PRESSURE
     Dosage: 10 MG 1 PER DAY
     Dates: start: 20091203, end: 20091207

REACTIONS (3)
  - FATIGUE [None]
  - OROPHARYNGEAL BLISTERING [None]
  - PRURITUS [None]
